FAERS Safety Report 7630229-0 (Version None)
Quarter: 2011Q3

REPORT INFORMATION
  Report Type: 
  Country: None (occurrence: None)
  Receive Date: 20110722
  Receipt Date: 20110719
  Transmission Date: 20111222
  Serious: Yes (Death, Hospitalization)
  Sender: FDA-Public Use
  Company Number: US-CELGENEUS-163-21880-11072316

PATIENT
  Age: 79 Year
  Sex: Male

DRUGS (8)
  1. NEUPOGEN [Concomitant]
     Route: 065
  2. DEXAMETHASONE [Concomitant]
     Route: 065
     Dates: start: 20101201
  3. REVLIMID [Suspect]
     Indication: MULTIPLE MYELOMA
     Dosage: 25 MILLIGRAM
     Route: 048
     Dates: start: 20110201, end: 20110701
  4. METFORMIN HCL [Concomitant]
     Route: 065
  5. TAMSULOSIN HCL [Concomitant]
     Route: 065
  6. MORPHINE [Concomitant]
     Route: 065
  7. ASPIRIN [Concomitant]
     Route: 065
  8. EZETIMIBE [Concomitant]
     Route: 065

REACTIONS (3)
  - DEATH [None]
  - PANCYTOPENIA [None]
  - PNEUMONIA [None]
